FAERS Safety Report 26042574 (Version 1)
Quarter: 2025Q4

REPORT INFORMATION
  Report Type: Spontaneous
  Country: US (occurrence: US)
  Receive Date: 20251113
  Receipt Date: 20251113
  Transmission Date: 20260118
  Serious: Yes (Other)
  Sender: NOVARTIS
  Company Number: US-SANDOZ-SDZ2025US083755

PATIENT
  Sex: Male

DRUGS (9)
  1. AZITHROMYCIN [Suspect]
     Active Substance: AZITHROMYCIN
     Indication: Mycobacterium chelonae infection
     Dosage: 500 MG, QD
     Route: 048
     Dates: end: 20250701
  2. AZITHROMYCIN [Suspect]
     Active Substance: AZITHROMYCIN
     Dosage: 500 MG, QD
     Route: 065
     Dates: start: 20250710
  3. CLARITHROMYCIN [Suspect]
     Active Substance: CLARITHROMYCIN
     Indication: Mycobacterium chelonae infection
     Dosage: 500 MG, BID (1000 MG, QD)
     Route: 065
  4. TOBRAMYCIN [Suspect]
     Active Substance: TOBRAMYCIN
     Indication: Mycobacterium chelonae infection
     Dosage: 450 MG, Q24H
     Route: 042
     Dates: start: 20250909, end: 20251003
  5. DOXYCYCLINE [Suspect]
     Active Substance: DOXYCYCLINE
     Indication: Mycobacterium chelonae infection
     Dosage: 100 MG, BID (200 MG QD)
     Route: 048
     Dates: start: 20250530, end: 20250701
  6. LINEZOLID [Suspect]
     Active Substance: LINEZOLID
     Indication: Mycobacterium chelonae infection
     Dosage: 600 MG, QD
     Route: 048
     Dates: start: 20250710
  7. OMADACYCLINE [Suspect]
     Active Substance: OMADACYCLINE
     Indication: Mycobacterium chelonae infection
     Dosage: 300 MG, QD
     Route: 048
  8. OMADACYCLINE [Suspect]
     Active Substance: OMADACYCLINE
     Dosage: 100 MG
     Route: 042
     Dates: start: 20251105
  9. AMBROXOL HYDROCHLORIDE [Suspect]
     Active Substance: AMBROXOL HYDROCHLORIDE
     Indication: Mycobacterium chelonae infection
     Dosage: UNK
     Route: 065
     Dates: start: 20250701, end: 20250710

REACTIONS (2)
  - Acute kidney injury [Unknown]
  - Gastrointestinal disorder [Unknown]

NARRATIVE: CASE EVENT DATE: 20251002
